FAERS Safety Report 14743188 (Version 2)
Quarter: 2018Q2

REPORT INFORMATION
  Report Type: Spontaneous
  Country: MX (occurrence: MX)
  Receive Date: 20180410
  Receipt Date: 20180427
  Transmission Date: 20180711
  Serious: Yes (Hospitalization, Other)
  Sender: FDA-Public Use
  Company Number: MX-GILEAD-2018-0331897

PATIENT
  Age: 48 Year
  Sex: Male
  Weight: 57 kg

DRUGS (1)
  1. ATRIPLA [Suspect]
     Active Substance: EFAVIRENZ\EMTRICITABINE\TENOFOVIR DISOPROXIL FUMARATE
     Indication: HIV INFECTION
     Dosage: 300/200/600MG, QD
     Route: 048
     Dates: start: 20120822, end: 20180311

REACTIONS (5)
  - Acute kidney injury [Unknown]
  - Chronic kidney disease [Unknown]
  - Epistaxis [Recovered/Resolved]
  - Cholelithiasis [Unknown]
  - Pancreatitis [Recovered/Resolved]
